FAERS Safety Report 10050469 (Version 1)
Quarter: 2014Q2

REPORT INFORMATION
  Report Type: Spontaneous
  Country: US (occurrence: US)
  Receive Date: 20140401
  Receipt Date: 20140401
  Transmission Date: 20141212
  Serious: Yes (Death, Other)
  Sender: FDA-Public Use
  Company Number: US-JNJFOC-20140313085

PATIENT
  Sex: 0

DRUGS (5)
  1. CLADRIBINE [Suspect]
     Indication: ACUTE MYELOID LEUKAEMIA RECURRENT
     Dosage: ON DAYS 2?6,
     Route: 042
  2. ARA-C [Suspect]
     Indication: ACUTE MYELOID LEUKAEMIA RECURRENT
     Dosage: 2 G/M2 ON DAYS 2?6,
     Route: 042
  3. GRANULOCYTE COLONY-STIMULATING FACTOR NOS [Suspect]
     Indication: ACUTE MYELOID LEUKAEMIA RECURRENT
     Dosage: ON DAYS 1?6
     Route: 058
  4. ATRA (ALL TRANS RETINOIC ACID) [Suspect]
     Indication: ACUTE MYELOID LEUKAEMIA RECURRENT
     Dosage: TWO DIVIDED DOSES DAILY ON DAYS 7?20
     Route: 048
  5. MIDOSTAURIN [Suspect]
     Indication: ACUTE MYELOID LEUKAEMIA RECURRENT
     Dosage: 25 MG (COHORT 1) OR 50 MG (COHORT 2) ON DAYS 7?20
     Route: 048

REACTIONS (10)
  - Disease progression [Fatal]
  - Haematotoxicity [Unknown]
  - Hyperglycaemia [Unknown]
  - Pneumonia [Unknown]
  - Sepsis [Unknown]
  - Sinusitis [Unknown]
  - Hypokalaemia [Unknown]
  - Hyperkalaemia [Unknown]
  - Hyponatraemia [Unknown]
  - Hypertriglyceridaemia [Unknown]
